FAERS Safety Report 14186157 (Version 5)
Quarter: 2024Q2

REPORT INFORMATION
  Report Type: Other
  Country: US (occurrence: None)
  Receive Date: 20171114
  Receipt Date: 20240529
  Transmission Date: 20240715
  Serious: Yes (Other)
  Sender: FDA-Public Use
  Company Number: US-ROCHE-2020390

PATIENT
  Age: 47 Year
  Sex: Male
  Weight: 56.75 kg

DRUGS (4)
  1. OCREVUS [Suspect]
     Active Substance: OCRELIZUMAB
     Indication: Relapsing-remitting multiple sclerosis
     Dosage: HAD 2ND DOSE 25-OCT-2017 ;ONGOING: UNKNOWN
     Route: 042
     Dates: start: 20171010
  2. OCREVUS [Suspect]
     Active Substance: OCRELIZUMAB
     Route: 065
     Dates: start: 20170905
  3. OCREVUS [Suspect]
     Active Substance: OCRELIZUMAB
     Route: 065
     Dates: start: 20170920
  4. OCREVUS [Suspect]
     Active Substance: OCRELIZUMAB
     Route: 065
     Dates: start: 201803

REACTIONS (16)
  - Seizure [Recovered/Resolved]
  - Disease recurrence [Unknown]
  - Hypoaesthesia [Not Recovered/Not Resolved]
  - Lower respiratory tract infection [Recovering/Resolving]
  - Pharyngeal swelling [Recovered/Resolved]
  - Headache [Not Recovered/Not Resolved]
  - Ill-defined disorder [Recovered/Resolved]
  - Pain in extremity [Not Recovered/Not Resolved]
  - Immunodeficiency [Unknown]
  - Hypersensitivity [Recovered/Resolved]
  - Throat irritation [Recovered/Resolved]
  - Asthenia [Not Recovered/Not Resolved]
  - Dysphagia [Recovered/Resolved]
  - Pharyngeal hypoaesthesia [Unknown]
  - Oropharyngeal pain [Unknown]
  - Brain fog [Unknown]

NARRATIVE: CASE EVENT DATE: 20170905
